FAERS Safety Report 20619608 (Version 2)
Quarter: 2022Q4

REPORT INFORMATION
  Report Type: Spontaneous
  Country: US (occurrence: US)
  Receive Date: 20220322
  Receipt Date: 20221226
  Transmission Date: 20230112
  Serious: Yes (Hospitalization, Other)
  Sender: FDA-Public Use
  Company Number: US-BRISTOL-MYERS SQUIBB COMPANY-BMS-2022-024351

PATIENT
  Age: 74 Year
  Sex: Female
  Weight: 71.7 kg

DRUGS (4)
  1. POMALYST [Suspect]
     Active Substance: POMALIDOMIDE
     Indication: Plasma cell myeloma
     Route: 048
  2. POMALYST [Suspect]
     Active Substance: POMALIDOMIDE
     Dosage: DAILY FOR 21 DAYS, THERAPY START DATE IS 01-NOV-2022, STOP DATE IS 14-DEC-2022.
     Route: 048
  3. BACTEROL [BACITRACIN;NEOMYCIN;POLYMYXIN B] [Concomitant]
     Indication: Product used for unknown indication
     Dosage: ADHESIVE TAPE
     Route: 061
  4. GRAMICIDIN\NEOMYCIN SULFATE\POLYMYXIN B SULFATE [Concomitant]
     Active Substance: GRAMICIDIN\NEOMYCIN SULFATE\POLYMYXIN B SULFATE
     Indication: Product used for unknown indication
     Dosage: CONTRAST DYE

REACTIONS (2)
  - Flatulence [Unknown]
  - Pneumonia [Unknown]

NARRATIVE: CASE EVENT DATE: 20220120
